FAERS Safety Report 8605287-7 (Version None)
Quarter: 2012Q3

REPORT INFORMATION
  Report Type: 
  Country: None (occurrence: None)
  Receive Date: 20120807
  Receipt Date: 20120726
  Transmission Date: 20120928
  Serious: Yes (Hospitalization)
  Sender: FDA-Public Use
  Company Number: UTC-021510

PATIENT
  Age: 66 Year
  Sex: Male

DRUGS (2)
  1. TYVASO [Suspect]
     Dosage: INHALATION
     Route: 055
  2. LETAIRIS (AMBRISENTAN) (TABLET) (AMBRISENTAN) [Suspect]
     Dosage: (10 MG), ORAL
     Route: 048

REACTIONS (2)
  - ASTHENIA [None]
  - SPEECH DISORDER [None]
